FAERS Safety Report 9857221 (Version 2)
Quarter: 2014Q1

REPORT INFORMATION
  Report Type: Report from Study
  Country: JP (occurrence: JP)
  Receive Date: 20140130
  Receipt Date: 20140324
  Transmission Date: 20141002
  Serious: Yes (Hospitalization, Other)
  Sender: FDA-Public Use
  Company Number: JP-BAXTER-2014BAX003866

PATIENT
  Sex: 0

DRUGS (2)
  1. FEIBA FOR INJECTION 1000 [Suspect]
     Indication: HAEMOPHILIA
  2. NOVOSEVEN [Suspect]
     Indication: HAEMARTHROSIS
     Route: 065

REACTIONS (2)
  - Haemarthrosis [Unknown]
  - Platelet count decreased [Recovered/Resolved]
